FAERS Safety Report 8601408-0 (Version None)
Quarter: 2012Q3

REPORT INFORMATION
  Report Type: 
  Country: None (occurrence: None)
  Receive Date: 20120817
  Receipt Date: 20120813
  Transmission Date: 20120928
  Serious: Yes (Death, Life-Threatening, Hospitalization, Other)
  Sender: FDA-Public Use
  Company Number: PHHY2009CA42054

PATIENT
  Sex: Female

DRUGS (1)
  1. CLOZARIL [Suspect]
     Indication: SCHIZOPHRENIA
     Dosage: 400 MG, DAILY
     Route: 048
     Dates: start: 20010605

REACTIONS (7)
  - DEATH [None]
  - WHITE BLOOD CELL COUNT DECREASED [None]
  - NEUTROPHIL COUNT DECREASED [None]
  - METASTASES TO CENTRAL NERVOUS SYSTEM [None]
  - CACHEXIA [None]
  - LUNG NEOPLASM MALIGNANT [None]
  - TERMINAL STATE [None]
